FAERS Safety Report 24956591 (Version 1)
Quarter: 2025Q1

REPORT INFORMATION
  Report Type: Spontaneous
  Country: BE (occurrence: BE)
  Receive Date: 20250211
  Receipt Date: 20250211
  Transmission Date: 20250408
  Serious: Yes (Death, Other)
  Sender: DAIICHI
  Company Number: BE-DSJP-DS-2025-124216-BE

PATIENT

DRUGS (1)
  1. ENHERTU [Suspect]
     Active Substance: FAM-TRASTUZUMAB DERUXTECAN-NXKI
     Indication: Product used for unknown indication
     Route: 065

REACTIONS (5)
  - Death [Fatal]
  - Staphylococcal sepsis [Unknown]
  - Osteomyelitis [Unknown]
  - Device related sepsis [Unknown]
  - Respiratory syncytial virus infection [Unknown]
